FAERS Safety Report 10173379 (Version 2)
Quarter: 2014Q3

REPORT INFORMATION
  Report Type: Spontaneous
  Country: JP (occurrence: JP)
  Receive Date: 20140515
  Receipt Date: 20140703
  Transmission Date: 20150326
  Serious: Yes (Hospitalization)
  Sender: FDA-Public Use
  Company Number: JP-TEVA-481572USA

PATIENT
  Age: 77 Year
  Sex: Female

DRUGS (17)
  1. RITUXIMAB [Concomitant]
     Active Substance: RITUXIMAB
     Dates: start: 20140218, end: 20140218
  2. MENATETRENONE [Concomitant]
     Active Substance: MENATETRENONE
  3. LANSOPRAZOLE. [Concomitant]
     Active Substance: LANSOPRAZOLE
  4. BENDAMUSTINE [Suspect]
     Active Substance: BENDAMUSTINE
     Dosage: ONCE DAILY
     Route: 042
     Dates: start: 20140122, end: 20140123
  5. RITUXIMAB [Concomitant]
     Active Substance: RITUXIMAB
     Dates: start: 20131205, end: 20131205
  6. RITUXIMAB [Concomitant]
     Active Substance: RITUXIMAB
     Dates: start: 20140121, end: 20140121
  7. SULFAMETHOXAZOLE-TRIMETHOPRIM (SMZ) [Concomitant]
     Active Substance: SULFAMETHOXAZOLE\TRIMETHOPRIM
  8. BROTIZOLAM [Concomitant]
     Active Substance: BROTIZOLAM
  9. RITUXIMAB [Concomitant]
     Active Substance: RITUXIMAB
     Dates: start: 20131224, end: 20131224
  10. BENDAMUSTINE [Suspect]
     Active Substance: BENDAMUSTINE
     Dosage: ONCE DAILY
     Route: 042
     Dates: start: 20140219, end: 20140220
  11. RITUXIMAB [Concomitant]
     Active Substance: RITUXIMAB
     Dates: start: 201403, end: 201403
  12. REBAMIPIDE [Concomitant]
     Active Substance: REBAMIPIDE
  13. BENDAMUSTINE [Suspect]
     Active Substance: BENDAMUSTINE
     Indication: DIFFUSE LARGE B-CELL LYMPHOMA
     Dosage: ONCE DAILY
     Route: 042
     Dates: start: 20131127, end: 20131128
  14. MAGNESIUM OXIDE. [Concomitant]
     Active Substance: MAGNESIUM OXIDE
  15. LEVOTHYROXINE [Concomitant]
     Active Substance: LEVOTHYROXINE
  16. BENDAMUSTINE [Suspect]
     Active Substance: BENDAMUSTINE
     Dosage: ONCE DAILY
     Route: 042
     Dates: start: 20131225, end: 20131226
  17. BENDAMUSTINE [Suspect]
     Active Substance: BENDAMUSTINE
     Route: 042
     Dates: start: 201403

REACTIONS (2)
  - Off label use [Unknown]
  - Neuropathy peripheral [Not Recovered/Not Resolved]

NARRATIVE: CASE EVENT DATE: 201403
